FAERS Safety Report 7749356-2 (Version None)
Quarter: 2011Q3

REPORT INFORMATION
  Report Type: 
  Country: None (occurrence: None)
  Receive Date: 20110908
  Receipt Date: 20110824
  Transmission Date: 20111222
  Serious: Yes (Death, Hospitalization, Other)
  Sender: FDA-Public Use
  Company Number: 2011SP036178

PATIENT
  Age: 60 Year
  Sex: Male
  Weight: 63 kg

DRUGS (13)
  1. SUGAMMADEX SODIUM [Suspect]
     Indication: NEUROMUSCULAR BLOCKADE REVERSAL
     Dosage: 200 MG;IV
     Route: 042
     Dates: start: 20110420, end: 20110420
  2. EPHEDRINE HYDROCHLORIDE [Concomitant]
  3. ULTIVA [Concomitant]
  4. FLURBIPROFEN [Concomitant]
  5. FLUMARIN [Concomitant]
  6. FENTANYL [Concomitant]
  7. DROPERIDOL [Concomitant]
  8. ROCURONIUM BROMIDE [Concomitant]
  9. DIPRIVAN [Concomitant]
  10. FAMOTIDINE [Concomitant]
  11. FRESH FROZEN PLASMA [Concomitant]
  12. ROPIVACAINE HYDROCHLORIDE [Concomitant]
  13. PREDNISOLONE [Concomitant]

REACTIONS (10)
  - BLOOD BILIRUBIN INCREASED [None]
  - HEPATIC FAILURE [None]
  - JAUNDICE [None]
  - PROTHROMBIN TIME SHORTENED [None]
  - RESPIRATORY ARREST [None]
  - MALAISE [None]
  - HEPATIC ENCEPHALOPATHY [None]
  - HYPOTENSION [None]
  - SOMNOLENCE [None]
  - CARDIAC ARREST [None]
